FAERS Safety Report 11845701 (Version 1)
Quarter: 2015Q4

REPORT INFORMATION
  Report Type: Spontaneous
  Country: US (occurrence: US)
  Receive Date: 20151217
  Receipt Date: 20151217
  Transmission Date: 20160305
  Serious: Yes (Hospitalization)
  Sender: FDA-Public Use
  Company Number: US-NOVOPROD-431381

PATIENT
  Age: 39 Year
  Sex: Female

DRUGS (2)
  1. LEVEMIR [Suspect]
     Active Substance: INSULIN DETEMIR
     Indication: TYPE 2 DIABETES MELLITUS
     Dosage: 45 UNITS TWICE DAILY IN THE MORNING AND AFTERNOON
     Route: 058
     Dates: start: 201411
  2. NOVOLOG [Concomitant]
     Active Substance: INSULIN ASPART
     Indication: TYPE 2 DIABETES MELLITUS
     Dosage: UNKNOWN
     Route: 058

REACTIONS (1)
  - Gastroenteritis viral [Not Recovered/Not Resolved]

NARRATIVE: CASE EVENT DATE: 201411
